FAERS Safety Report 9921993 (Version 3)
Quarter: 2014Q1

REPORT INFORMATION
  Report Type: Spontaneous
  Country: US (occurrence: US)
  Receive Date: 20140225
  Receipt Date: 20140307
  Transmission Date: 20141002
  Serious: Yes (Hospitalization, Other)
  Sender: FDA-Public Use
  Company Number: US-DENDREON CORPORATION-2014PROUSA03531

PATIENT
  Age: 73 Year
  Sex: Male

DRUGS (1)
  1. PROVENGE [Suspect]
     Indication: PROSTATE CANCER METASTATIC
     Dosage: 250 ML, SINGLE
     Route: 042
     Dates: start: 20140130, end: 20140130

REACTIONS (4)
  - Investigation [Unknown]
  - Pancytopenia [Unknown]
  - Disease progression [Unknown]
  - Blood potassium decreased [Unknown]
